FAERS Safety Report 19910990 (Version 8)
Quarter: 2022Q4

REPORT INFORMATION
  Report Type: Report from Study
  Country: JP (occurrence: JP)
  Receive Date: 20211004
  Receipt Date: 20221111
  Transmission Date: 20230113
  Serious: Yes (Other)
  Sender: FDA-Public Use
  Company Number: JP-MSD-M2021-19251

PATIENT
  Age: 65 Year
  Sex: Male
  Weight: 81 kg

DRUGS (6)
  1. PEMBROLIZUMAB [Suspect]
     Active Substance: PEMBROLIZUMAB
     Indication: Renal cell carcinoma stage IV
     Dosage: 200 MILLIGRAM, Q3W
     Route: 041
     Dates: start: 20210629, end: 20211102
  2. PEMBROLIZUMAB [Suspect]
     Active Substance: PEMBROLIZUMAB
     Dosage: 200 MILLIGRAM
     Route: 041
     Dates: start: 20211124, end: 20211215
  3. PEMBROLIZUMAB [Suspect]
     Active Substance: PEMBROLIZUMAB
     Dosage: 200 MILLIGRAM, Q3W
     Route: 041
     Dates: start: 20220125, end: 20220329
  4. AXITINIB [Suspect]
     Active Substance: AXITINIB
     Indication: Renal cell carcinoma stage IV
     Dosage: 5 MILLIGRAM, BID
     Route: 048
     Dates: start: 20210629, end: 20210809
  5. AXITINIB [Suspect]
     Active Substance: AXITINIB
     Dosage: 3 MILLIGRAM, BID
     Route: 048
     Dates: start: 20210810, end: 20210821
  6. AXITINIB [Suspect]
     Active Substance: AXITINIB
     Dosage: 6 MILLIGRAM
     Route: 048

REACTIONS (8)
  - Immune-mediated hypothyroidism [Recovered/Resolved]
  - Hypothyroidism [Recovered/Resolved]
  - Cardiomyopathy [Recovered/Resolved]
  - Dehydration [Recovering/Resolving]
  - Platelet count decreased [Recovered/Resolved]
  - Dysphonia [Recovered/Resolved]
  - Hepatic function abnormal [Recovered/Resolved]
  - Off label use [Unknown]

NARRATIVE: CASE EVENT DATE: 20210810
